FAERS Safety Report 15595069 (Version 1)
Quarter: 2018Q4

REPORT INFORMATION
  Report Type: Spontaneous
  Country: US (occurrence: US)
  Receive Date: 20181106
  Receipt Date: 20181106
  Transmission Date: 20190205
  Serious: Yes (Other)
  Sender: FDA-Public Use
  Company Number: PHHY2018US142486

PATIENT
  Age: 40 Year
  Sex: Female

DRUGS (3)
  1. RITUXIMAB. [Concomitant]
     Active Substance: RITUXIMAB
     Indication: PRODUCT USED FOR UNKNOWN INDICATION
     Dosage: 650 MG, UNK
     Route: 065
  2. ADALIMUMAB [Concomitant]
     Active Substance: ADALIMUMAB
     Indication: COLITIS MICROSCOPIC
  3. MYCOPHENOLATE MOFETIL. [Suspect]
     Active Substance: MYCOPHENOLATE MOFETIL
     Indication: IDIOPATHIC INTERSTITIAL PNEUMONIA
     Route: 065

REACTIONS (8)
  - Nervous system disorder [Recovering/Resolving]
  - Optic neuritis [Recovering/Resolving]
  - Metastases to meninges [Recovering/Resolving]
  - Neurotoxicity [Recovering/Resolving]
  - Visual field defect [Recovering/Resolving]
  - Optic atrophy [Recovering/Resolving]
  - Chorioretinopathy [Recovering/Resolving]
  - Product use in unapproved indication [Unknown]

NARRATIVE: CASE EVENT DATE: 200908
